FAERS Safety Report 6609505-6 (Version None)
Quarter: 2010Q1

REPORT INFORMATION
  Report Type: 
  Country: None (occurrence: None)
  Receive Date: 20100224
  Receipt Date: 20100211
  Transmission Date: 20100710
  Serious: Yes (Life-Threatening, Hospitalization)
  Sender: FDA-Public Use
  Company Number: 008216

PATIENT
  Age: 70 Year
  Sex: Male
  Weight: 87 kg

DRUGS (10)
  1. PLETAL [Suspect]
     Indication: ARTERIAL OCCLUSIVE DISEASE
     Dosage: 100 MG, BID ORAL
     Route: 048
     Dates: start: 20091126, end: 20091201
  2. ASPIRIN [Concomitant]
  3. MARCUMAR [Concomitant]
  4. RAMIPRIL [Concomitant]
  5. TORSEMIDE [Concomitant]
  6. DIGOXIN [Concomitant]
  7. BISOPROLOL FUMARATE [Concomitant]
  8. LEVOTHYROXINE SODIUM [Concomitant]
  9. ALLOPURINOL [Concomitant]
  10. FENOFIBRATE [Concomitant]

REACTIONS (3)
  - HAEMORRHAGE [None]
  - HYPOCHROMIC ANAEMIA [None]
  - MUSCLE SPASMS [None]
